FAERS Safety Report 20745078 (Version 6)
Quarter: 2023Q1

REPORT INFORMATION
  Report Type: Spontaneous
  Country: US (occurrence: US)
  Receive Date: 20220425
  Receipt Date: 20230223
  Transmission Date: 20230417
  Serious: Yes (Other)
  Sender: FDA-Public Use
  Company Number: US-PFIZER INC-202200584705

PATIENT
  Age: 53 Year
  Sex: Female

DRUGS (1)
  1. IBRANCE [Suspect]
     Active Substance: PALBOCICLIB
     Dosage: 100 MG, CYCLIC (DAILY)

REACTIONS (5)
  - Eye operation [Unknown]
  - Rash papular [Recovered/Resolved]
  - Inflammation [Recovered/Resolved]
  - Full blood count decreased [Unknown]
  - Rash [Unknown]
